FAERS Safety Report 10028426 (Version 2)
Quarter: 2014Q1

REPORT INFORMATION
  Report Type: Spontaneous
  Country: US (occurrence: US)
  Receive Date: 20140321
  Receipt Date: 20140328
  Transmission Date: 20141002
  Serious: Yes (Other)
  Sender: FDA-Public Use
  Company Number: US-ABBVIE-14P-163-1214556-00

PATIENT
  Sex: Female
  Weight: 83.08 kg

DRUGS (5)
  1. SYNTHROID [Suspect]
     Indication: PRODUCT USED FOR UNKNOWN INDICATION
     Route: 048
     Dates: start: 20140320
  2. LEVOTHYROXINE [Suspect]
     Indication: PRODUCT USED FOR UNKNOWN INDICATION
     Dates: start: 201312
  3. OB1 COMPLETE [Concomitant]
     Indication: VITAMIN SUPPLEMENTATION
  4. DHEA [Concomitant]
     Indication: PRODUCT USED FOR UNKNOWN INDICATION
  5. CQ10 [Concomitant]
     Indication: PRODUCT USED FOR UNKNOWN INDICATION

REACTIONS (6)
  - Abortion spontaneous [Unknown]
  - Blood follicle stimulating hormone increased [Unknown]
  - Infertility tests abnormal [Unknown]
  - Menstrual disorder [Not Recovered/Not Resolved]
  - Metrorrhagia [Not Recovered/Not Resolved]
  - Premature ovulation [Not Recovered/Not Resolved]
